FAERS Safety Report 6941631-4 (Version None)
Quarter: 2010Q3

REPORT INFORMATION
  Report Type: 
  Country: None (occurrence: None)
  Receive Date: 20100825
  Receipt Date: 20100817
  Transmission Date: 20110219
  Serious: Yes (Hospitalization)
  Sender: FDA-Public Use
  Company Number: AR-AMGEN-QUU433546

PATIENT
  Sex: Female
  Weight: 90 kg

DRUGS (5)
  1. ENBREL [Suspect]
     Indication: RHEUMATOID ARTHRITIS
     Route: 058
     Dates: start: 20081224, end: 20100730
  2. OMEPRAZOLE [Concomitant]
  3. FOLIC ACID [Concomitant]
  4. LOSARTAN POTASSIUM [Concomitant]
  5. METHOTREXATE [Concomitant]

REACTIONS (5)
  - CONVULSION [None]
  - LOSS OF CONSCIOUSNESS [None]
  - MOTION SICKNESS [None]
  - NAUSEA [None]
  - VERTIGO [None]
